FAERS Safety Report 19895481 (Version 1)
Quarter: 2021Q3

REPORT INFORMATION
  Report Type: Spontaneous
  Country: US (occurrence: US)
  Receive Date: 20210929
  Receipt Date: 20210929
  Transmission Date: 20211014
  Serious: Yes (Other)
  Sender: FDA-Public Use
  Company Number: US-MYLANLABS-2021M1067006

PATIENT
  Age: 59 Year
  Sex: Male

DRUGS (4)
  1. IRINOTECAN [Concomitant]
     Active Substance: IRINOTECAN
     Indication: PANCREATIC CARCINOMA
     Dosage: UNK UNK, CYCLE, AS A PART OF FOLFIRINOX REGIMEN
     Route: 065
  2. LEUCOVORIN                         /00566701/ [Concomitant]
     Active Substance: LEUCOVORIN
     Indication: PANCREATIC CARCINOMA
     Dosage: UNK UNK, CYCLE, AS A PART OF FOLFIRINOX REGIMEN
     Route: 065
  3. OXALIPLATIN. [Concomitant]
     Active Substance: OXALIPLATIN
     Indication: PANCREATIC CARCINOMA
     Dosage: UNK UNK, CYCLE, AS A PART OF FOLFIRINOX REGIMEN
     Route: 065
  4. FLUOROURACIL. [Suspect]
     Active Substance: FLUOROURACIL
     Indication: PANCREATIC CARCINOMA
     Dosage: UNK UNK, CYCLE, AS A PART OF FOLFIRINOX REGIMEN
     Route: 065

REACTIONS (2)
  - Cerebellar syndrome [Not Recovered/Not Resolved]
  - Toxicity to various agents [Not Recovered/Not Resolved]
